FAERS Safety Report 5693659-2 (Version None)
Quarter: 2008Q2

REPORT INFORMATION
  Report Type: 
  Country: None (occurrence: None)
  Receive Date: 20080403
  Receipt Date: 20080324
  Transmission Date: 20081010
  Serious: Yes (Life-Threatening, Hospitalization, Disabling)
  Sender: FDA-Public Use
  Company Number: US-MERCK-0803USA03130

PATIENT
  Age: 42 Year
  Sex: Male

DRUGS (3)
  1. JANUVIA [Suspect]
     Indication: DIABETES MELLITUS
     Route: 048
     Dates: start: 20070820, end: 20071201
  2. ACTOS [Concomitant]
     Route: 065
  3. DIAMET [Concomitant]
     Route: 065

REACTIONS (5)
  - ACCIDENT AT WORK [None]
  - CHEST PAIN [None]
  - DEEP VEIN THROMBOSIS [None]
  - MULTIPLE FRACTURES [None]
  - PANCREATIC CARCINOMA STAGE IV [None]
